FAERS Safety Report 19947389 (Version 1)
Quarter: 2021Q4

REPORT INFORMATION
  Report Type: Other
  Country: CH (occurrence: IT)
  Receive Date: 20211012
  Receipt Date: 20211012
  Transmission Date: 20220303
  Serious: Yes (Hospitalization)
  Sender: FDA-Public Use
  Company Number: IT-ASTELLAS-2021US038240

PATIENT
  Age: 40 Year
  Sex: Female

DRUGS (1)
  1. ISAVUCONAZOLE [Suspect]
     Active Substance: ISAVUCONAZOLE
     Indication: Antifungal treatment
     Dosage: UNK, UNKNOWN FREQ.
     Route: 042
     Dates: start: 20210910

REACTIONS (2)
  - Ammonia increased [Recovering/Resolving]
  - Off label use [Unknown]

NARRATIVE: CASE EVENT DATE: 20210910
